FAERS Safety Report 20110124 (Version 1)
Quarter: 2021Q4

REPORT INFORMATION
  Report Type: Report from Study
  Country: US (occurrence: US)
  Receive Date: 20211124
  Receipt Date: 20211124
  Transmission Date: 20220303
  Serious: Yes (Other)
  Sender: FDA-Public Use
  Company Number: US-ABBVIE-21K-163-4166907-00

PATIENT
  Sex: Female

DRUGS (1)
  1. HUMIRA [Suspect]
     Active Substance: ADALIMUMAB
     Indication: Crohn^s disease
     Route: 058

REACTIONS (7)
  - Blindness [Not Recovered/Not Resolved]
  - Weight increased [Unknown]
  - Haemorrhoids [Unknown]
  - Eczema [Unknown]
  - Eye swelling [Unknown]
  - Vision blurred [Unknown]
  - Polyp [Unknown]
